FAERS Safety Report 19855441 (Version 1)
Quarter: 2021Q3

REPORT INFORMATION
  Report Type: Spontaneous
  Country: US (occurrence: US)
  Receive Date: 20210919
  Receipt Date: 20210919
  Transmission Date: 20211014
  Serious: Yes (Life-Threatening, Hospitalization, Disabling, Congenital Anomaly, Other)
  Sender: FDA-Public Use
  Company Number: None

PATIENT
  Age: 26 Year
  Weight: 54.43 kg

DRUGS (5)
  1. CLOZAPINE. [Suspect]
     Active Substance: CLOZAPINE
     Indication: PARANOIA
     Dosage: ?          QUANTITY:60 ;?
  2. VYVANSE [Suspect]
     Active Substance: LISDEXAMFETAMINE DIMESYLATE
     Indication: ATTENTION DEFICIT HYPERACTIVITY DISORDER
     Dosage: ?          QUANTITY:30 ;?
  3. TRAZODONE [Suspect]
     Active Substance: TRAZODONE HYDROCHLORIDE
  4. CLOZAPINE. [Suspect]
     Active Substance: CLOZAPINE
     Indication: SCHIZOPHRENIA
     Dosage: ?          QUANTITY:60 ;?
  5. BENZTROPINE. [Suspect]
     Active Substance: BENZTROPINE

REACTIONS (5)
  - Back pain [None]
  - Groin pain [None]
  - Schizophrenia [None]
  - Bowel movement irregularity [None]
  - Headache [None]

NARRATIVE: CASE EVENT DATE: 20200601
